FAERS Safety Report 13825847 (Version 6)
Quarter: 2019Q1

REPORT INFORMATION
  Report Type: Spontaneous
  Country: US (occurrence: US)
  Receive Date: 20170802
  Receipt Date: 20190205
  Transmission Date: 20190417
  Serious: Yes (Other)
  Sender: FDA-Public Use
  Company Number: US-ACTELION-A-NJ2017-157443

PATIENT
  Age: 69 Year
  Sex: Female

DRUGS (2)
  1. OPSUMIT [Suspect]
     Active Substance: MACITENTAN
     Indication: PULMONARY ARTERIAL HYPERTENSION
     Dosage: 10 MG, QD
     Route: 048
     Dates: start: 20170705, end: 20170722
  2. BUMEX [Suspect]
     Active Substance: BUMETANIDE
     Indication: OEDEMA PERIPHERAL
     Route: 065

REACTIONS (15)
  - Arthralgia [Unknown]
  - Fluid retention [Unknown]
  - Weight increased [Unknown]
  - Peripheral swelling [Unknown]
  - Gout [Unknown]
  - Dyspnoea [Not Recovered/Not Resolved]
  - Swelling [Unknown]
  - Ocular hyperaemia [Not Recovered/Not Resolved]
  - Dermatitis [Recovering/Resolving]
  - Skin exfoliation [Recovering/Resolving]
  - Lung transplant [Unknown]
  - Eye irritation [Recovering/Resolving]
  - Gait disturbance [Unknown]
  - Ill-defined disorder [Unknown]
  - Musculoskeletal stiffness [Unknown]
